FAERS Safety Report 7107160-2 (Version None)
Quarter: 2010Q4

REPORT INFORMATION
  Report Type: 
  Country: None (occurrence: None)
  Receive Date: 20101116
  Receipt Date: 20101108
  Transmission Date: 20110411
  Serious: Yes (Other)
  Sender: FDA-Public Use
  Company Number: US-AMGEN-USASP2010003863

PATIENT

DRUGS (1)
  1. ENBREL [Suspect]
     Indication: RHEUMATOID ARTHRITIS
     Dates: start: 20100820

REACTIONS (10)
  - ANGER [None]
  - BELLIGERENCE [None]
  - CONFUSIONAL STATE [None]
  - DIZZINESS [None]
  - ERYTHEMA [None]
  - HEADACHE [None]
  - NASOPHARYNGITIS [None]
  - PARAESTHESIA [None]
  - RHINORRHOEA [None]
  - SPEECH DISORDER [None]
